FAERS Safety Report 14164066 (Version 1)
Quarter: 2017Q4

REPORT INFORMATION
  Report Type: Spontaneous
  Country: US (occurrence: US)
  Receive Date: 20171106
  Receipt Date: 20171106
  Transmission Date: 20180321
  Serious: No
  Sender: FDA-Public Use
  Company Number: US-AMGEN-USASP2017004395

PATIENT
  Age: 83 Year
  Sex: Male

DRUGS (3)
  1. ARANESP [Suspect]
     Active Substance: DARBEPOETIN ALFA
     Indication: ANAEMIA
  2. ARANESP [Suspect]
     Active Substance: DARBEPOETIN ALFA
     Indication: MYELODYSPLASTIC SYNDROME
     Dosage: 300 MUG, Q2WK
     Route: 065
  3. VIDAZA [Concomitant]
     Active Substance: AZACITIDINE
     Dosage: UNK

REACTIONS (2)
  - Unevaluable event [Unknown]
  - Off label use [Unknown]
